FAERS Safety Report 4537727-7 (Version None)
Quarter: 2004Q4

REPORT INFORMATION
  Report Type: 
  Country: None (occurrence: None)
  Receive Date: 20041224
  Receipt Date: 20030605
  Transmission Date: 20050328
  Serious: Yes (Hospitalization, Disabling, Other)
  Sender: FDA-Public Use
  Company Number: US-MERCK-0306USA00827

PATIENT
  Age: 50 Year
  Sex: Female
  Weight: 124 kg

DRUGS (16)
  1. VIOXX [Suspect]
     Route: 048
     Dates: start: 19990101
  2. ST. JOSEPH ADULT CHEWABLE ASPIRIN [Concomitant]
     Route: 065
  3. NORVASC [Concomitant]
     Route: 065
  4. PAXIL [Concomitant]
     Route: 065
  5. PAXIL [Concomitant]
     Route: 065
  6. LOTENSIN [Concomitant]
     Route: 065
  7. XANAX [Concomitant]
     Route: 065
  8. XANAX [Concomitant]
     Route: 065
  9. RESTORIL [Concomitant]
     Route: 065
  10. DARVOCET-N 100 [Concomitant]
     Route: 065
  11. ALLEGRA [Concomitant]
     Route: 065
  12. FLOVENT [Concomitant]
     Route: 065
  13. UNIPHYL [Concomitant]
     Route: 065
  14. SEREVENT [Concomitant]
     Route: 055
  15. ALBUTEROL [Concomitant]
     Route: 055
  16. MOBIC [Concomitant]
     Route: 065

REACTIONS (34)
  - ACUTE SINUSITIS [None]
  - ADVERSE EVENT [None]
  - ARTHRALGIA [None]
  - BURSITIS [None]
  - CHEST DISCOMFORT [None]
  - CHEST PAIN [None]
  - CHONDROMALACIA [None]
  - CONGENITAL ATRIAL SEPTAL DEFECT [None]
  - DILATATION ATRIAL [None]
  - DIZZINESS [None]
  - DYSPNOEA [None]
  - EAR INFECTION [None]
  - ELECTROCARDIOGRAM ST-T CHANGE [None]
  - EUSTACHIAN TUBE DYSFUNCTION [None]
  - FACIAL PAIN [None]
  - FLUID RETENTION [None]
  - HEADACHE [None]
  - INJURY [None]
  - JOINT SWELLING [None]
  - LABYRINTHITIS [None]
  - MITRAL VALVE INCOMPETENCE [None]
  - MUSCULOSKELETAL DISCOMFORT [None]
  - NASAL SINUS DRAINAGE [None]
  - OTITIS EXTERNA [None]
  - PAIN IN EXTREMITY [None]
  - PHARYNGOLARYNGEAL PAIN [None]
  - PULMONARY HYPERTENSION [None]
  - REFLUX OESOPHAGITIS [None]
  - ROAD TRAFFIC ACCIDENT [None]
  - SINUS DISORDER [None]
  - SINUSITIS [None]
  - TEMPOROMANDIBULAR JOINT SYNDROME [None]
  - TRACHEITIS [None]
  - TRICUSPID VALVE INCOMPETENCE [None]
